FAERS Safety Report 16304085 (Version 2)
Quarter: 2019Q2

REPORT INFORMATION
  Report Type: Spontaneous
  Country: NO (occurrence: NO)
  Receive Date: 20190513
  Receipt Date: 20190517
  Transmission Date: 20190711
  Serious: Yes (Hospitalization)
  Sender: FDA-Public Use
  Company Number: NO-MALLINCKRODT-T201903601

PATIENT
  Age: 53 Year
  Sex: Male

DRUGS (2)
  1. ACDA [Concomitant]
     Indication: ANTICOAGULANT THERAPY
     Dosage: UNK
     Route: 065
  2. UVADEX [Suspect]
     Active Substance: METHOXSALEN
     Indication: PROPHYLAXIS AGAINST GRAFT VERSUS HOST DISEASE
     Dosage: UNK, EXTRACORPOREAL
     Route: 050

REACTIONS (5)
  - Loss of consciousness [Recovered/Resolved]
  - Blood pressure decreased [Unknown]
  - Product use in unapproved indication [Unknown]
  - Infection [Unknown]
  - Pyrexia [Unknown]

NARRATIVE: CASE EVENT DATE: 20190501
